FAERS Safety Report 4878103-7 (Version None)
Quarter: 2006Q1

REPORT INFORMATION
  Report Type: 
  Country: None (occurrence: None)
  Receive Date: 20060110
  Receipt Date: 20060103
  Transmission Date: 20060701
  Serious: No
  Sender: FDA-Public Use
  Company Number: 2006-136562-NL

PATIENT
  Age: 25 Year
  Sex: Female

DRUGS (5)
  1. MIRTAZAPINE [Suspect]
  2. PIPAMPERONE [Suspect]
     Dosage: ORAL
     Route: 048
  3. VALPROATE SODIUM [Suspect]
     Dosage: ORAL
     Route: 048
  4. HALOPERIDOL [Suspect]
     Dosage: ORAL
     Route: 048
  5. LEVOMEPROMAZINE MALEATE [Suspect]
     Dosage: ORAL
     Route: 048

REACTIONS (4)
  - NAUSEA [None]
  - SUICIDAL IDEATION [None]
  - SUICIDE ATTEMPT [None]
  - VERTIGO [None]
